FAERS Safety Report 20141524 (Version 1)
Quarter: 2021Q4

REPORT INFORMATION
  Report Type: Report from Study
  Country: US (occurrence: US)
  Receive Date: 20211202
  Receipt Date: 20211202
  Transmission Date: 20220303
  Serious: Yes (Hospitalization)
  Sender: FDA-Public Use
  Company Number: US-BAYER-2021-192638

PATIENT
  Age: 36 Year
  Sex: Female

DRUGS (4)
  1. STIVARGA [Suspect]
     Active Substance: REGORAFENIB
     Indication: Colon cancer
     Dosage: 160 MG, QD AT PM
     Dates: start: 20210602
  2. STIVARGA [Suspect]
     Active Substance: REGORAFENIB
     Indication: Colon cancer
  3. MS CONTIN [Concomitant]
     Active Substance: MORPHINE SULFATE
     Dosage: TWICE DAILY
  4. ANTIBIOTIC [CHLORAMPHENICOL] [Concomitant]
     Dosage: UNK

REACTIONS (5)
  - Hospitalisation [Not Recovered/Not Resolved]
  - Full blood count abnormal [None]
  - Pain in extremity [None]
  - Trichorrhexis [None]
  - Dry skin [Not Recovered/Not Resolved]
